FAERS Safety Report 23457872 (Version 1)
Quarter: 2024Q1

REPORT INFORMATION
  Report Type: Spontaneous
  Country: JP (occurrence: None)
  Receive Date: 20240130
  Receipt Date: 20240130
  Transmission Date: 20240410
  Serious: Yes (Other)
  Sender: FDA-Public Use
  Company Number: 2023A240548

PATIENT
  Age: 55 Year
  Sex: Female

DRUGS (10)
  1. LYNPARZA [Suspect]
     Active Substance: OLAPARIB
     Indication: Ovarian cancer
     Dosage: DOSE UNKNOWN
     Route: 048
     Dates: start: 20221028, end: 20231023
  2. CISPLATIN [Suspect]
     Active Substance: CISPLATIN
     Indication: Ovarian cancer
     Dosage: DOSE UNKNOWN
     Route: 041
  3. HERBALS [Concomitant]
     Active Substance: HERBALS
     Dosage: DOSE UNKNOWN
  4. CARBOCYSTEINE [Concomitant]
     Active Substance: CARBOCYSTEINE
     Dosage: DOSE UNKNOWN
  5. ESZOPICLONE [Concomitant]
     Active Substance: ESZOPICLONE
     Dosage: DOSE UNKNOWN
  6. PREGABALIN [Concomitant]
     Active Substance: PREGABALIN
     Dosage: DOSE UNKNOWN
  7. HERBALS [Concomitant]
     Active Substance: HERBALS
     Dosage: DOSE UNKNOWN
  8. BEVACIZUMAB [Suspect]
     Active Substance: BEVACIZUMAB
  9. GEMCITABINE [Suspect]
     Active Substance: GEMCITABINE
  10. ATEZOLIZUMAB [Suspect]
     Active Substance: ATEZOLIZUMAB

REACTIONS (2)
  - Neuropathy peripheral [Recovering/Resolving]
  - Taste disorder [Unknown]
